FAERS Safety Report 23887220 (Version 2)
Quarter: 2024Q2

REPORT INFORMATION
  Report Type: Spontaneous
  Country: US (occurrence: None)
  Receive Date: 20240523
  Receipt Date: 20240628
  Transmission Date: 20240716
  Serious: No
  Sender: FDA-Public Use
  Company Number: 2024A106977

PATIENT
  Age: 80 Year
  Sex: Male

DRUGS (2)
  1. BREZTRI [Suspect]
     Active Substance: BUDESONIDE\FORMOTEROL\GLYCOPYRROLATE
     Dosage: 160MCG/9MCG/4.8MCG, UNKNOWN FREQUENCY
     Dates: start: 2024
  2. TRULICITY [Concomitant]
     Active Substance: DULAGLUTIDE

REACTIONS (11)
  - Chronic obstructive pulmonary disease [Unknown]
  - Diabetes mellitus [Unknown]
  - Angiopathy [Unknown]
  - Ill-defined disorder [Unknown]
  - Glycosylated haemoglobin increased [Unknown]
  - Muscle atrophy [Unknown]
  - Device use issue [Recovered/Resolved]
  - Wrong technique in device usage process [Unknown]
  - Drug dose omission by device [Recovered/Resolved]
  - Device malfunction [Unknown]
  - Device delivery system issue [Recovered/Resolved]

NARRATIVE: CASE EVENT DATE: 20240101
